FAERS Safety Report 10080934 (Version 2)
Quarter: 2014Q2

REPORT INFORMATION
  Report Type: Spontaneous
  Country: FR (occurrence: FR)
  Receive Date: 20140416
  Receipt Date: 20140416
  Transmission Date: 20141212
  Serious: Yes (Hospitalization)
  Sender: FDA-Public Use
  Company Number: FR-TEVA-412788ISR

PATIENT
  Age: 86 Year
  Sex: Female

DRUGS (2)
  1. FUROSEMIDE TEVA 40 MG [Suspect]
     Indication: CARDIAC FAILURE
     Route: 048
     Dates: start: 20130604
  2. FUROSEMIDE TEVA 40 MG [Suspect]
     Indication: PULMONARY OEDEMA

REACTIONS (4)
  - Hospitalisation [Unknown]
  - Balance disorder [Unknown]
  - Fatigue [Unknown]
  - Sleep disorder [Unknown]
